FAERS Safety Report 10623300 (Version 1)
Quarter: 2014Q4

REPORT INFORMATION
  Report Type: Other
  Country: GB (occurrence: GB)
  Receive Date: 20141203
  Receipt Date: 20141203
  Transmission Date: 20150529
  Serious: Yes (Other)
  Sender: FDA-Public Use
  Company Number: GB-MYLANLABS-2014M1011742

PATIENT

DRUGS (1)
  1. SERTRALINE [Suspect]
     Active Substance: SERTRALINE HYDROCHLORIDE
     Indication: DEPRESSION
     Dosage: 50 MG, UNK

REACTIONS (4)
  - Palpitations [Recovered/Resolved]
  - Hallucination, visual [Recovered/Resolved]
  - Bruxism [Recovered/Resolved]
  - Cognitive disorder [Recovered/Resolved]
